FAERS Safety Report 11538699 (Version 2)
Quarter: 2016Q4

REPORT INFORMATION
  Report Type: Spontaneous
  Country: FR (occurrence: FR)
  Receive Date: 20150923
  Receipt Date: 20161124
  Transmission Date: 20170206
  Serious: Yes (Hospitalization)
  Sender: FDA-Public Use
  Company Number: FR-ROCHE-1595719

PATIENT
  Age: 72 Year
  Sex: Female

DRUGS (24)
  1. HYDROCORTISONE. [Concomitant]
     Active Substance: HYDROCORTISONE
     Route: 065
  2. PANTOPRAZOLE [Concomitant]
     Active Substance: PANTOPRAZOLE SODIUM
     Route: 065
  3. FOLIC ACID. [Concomitant]
     Active Substance: FOLIC ACID
     Route: 065
  4. ROCEPHINE [Suspect]
     Active Substance: CEFTRIAXONE SODIUM
     Indication: DIARRHOEA
     Route: 042
     Dates: start: 20150529, end: 20150531
  5. ESOMEPRAZOLE [Suspect]
     Active Substance: ESOMEPRAZOLE
     Indication: PRODUCT USED FOR UNKNOWN INDICATION
     Route: 042
     Dates: start: 20150529, end: 20150608
  6. CABERGOLINE. [Concomitant]
     Active Substance: CABERGOLINE
  7. FLAGYL [Suspect]
     Active Substance: METRONIDAZOLE\METRONIDAZOLE HYDROCHLORIDE
     Route: 065
     Dates: start: 20160530
  8. VOGALENE [Concomitant]
     Active Substance: METOPIMAZINE
     Dosage: 1-4 DOSES.
     Route: 065
  9. PARACETAMOL [Concomitant]
     Active Substance: ACETAMINOPHEN
     Dosage: WHEN NEEDED
     Route: 065
  10. DERMOVAL (FRANCE) [Concomitant]
     Route: 065
     Dates: start: 20150618
  11. HYDROCORTISONE. [Concomitant]
     Active Substance: HYDROCORTISONE
     Route: 065
  12. ALFACALCIDOL [Concomitant]
     Active Substance: ALFACALCIDOL
  13. LEVOTHYROX [Concomitant]
     Active Substance: LEVOTHYROXINE
     Route: 065
  14. SPECIAFOLDINE [Concomitant]
     Active Substance: FOLIC ACID
  15. TIENAM [Suspect]
     Active Substance: CILASTATIN SODIUM\IMIPENEM
     Indication: DIARRHOEA
     Route: 042
     Dates: start: 20150603, end: 20150608
  16. CACIT D3 [Concomitant]
     Active Substance: CALCIUM\CHOLECALCIFEROL
  17. OFLOCET [Suspect]
     Active Substance: OFLOXACIN
     Indication: PRODUCT USED FOR UNKNOWN INDICATION
     Route: 065
     Dates: start: 20160531
  18. VANCOMYCINE [Suspect]
     Active Substance: VANCOMYCIN
     Indication: PRODUCT USED FOR UNKNOWN INDICATION
     Route: 065
  19. UVEDOSE [Concomitant]
     Active Substance: CHOLECALCIFEROL
  20. FLAGYL [Suspect]
     Active Substance: METRONIDAZOLE\METRONIDAZOLE HYDROCHLORIDE
     Indication: DIARRHOEA
     Route: 042
     Dates: start: 20150529, end: 20150608
  21. GENTAMYCINE [Suspect]
     Active Substance: GENTAMICIN
     Indication: PRODUCT USED FOR UNKNOWN INDICATION
     Route: 065
     Dates: start: 20160603
  22. LOPERAMIDE [Concomitant]
     Active Substance: LOPERAMIDE
     Dosage: WHEN NEEDED
     Route: 065
  23. 1-ALPHA [Concomitant]
     Active Substance: ALFACALCIDOL
  24. ROCEPHINE [Suspect]
     Active Substance: CEFTRIAXONE SODIUM
     Route: 065
     Dates: start: 20160530

REACTIONS (5)
  - Cholestasis [Recovered/Resolved]
  - Jaundice [Recovered/Resolved]
  - Eosinophilia [Recovered/Resolved]
  - Rash morbilliform [Recovered/Resolved]
  - Urticaria [Recovered/Resolved]

NARRATIVE: CASE EVENT DATE: 20150531
